FAERS Safety Report 7570091-8 (Version None)
Quarter: 2011Q2

REPORT INFORMATION
  Report Type: 
  Country: None (occurrence: None)
  Receive Date: 20110620
  Receipt Date: 20110310
  Transmission Date: 20111010
  Serious: Yes (Other)
  Sender: FDA-Public Use
  Company Number: US-20110001

PATIENT

DRUGS (1)
  1. HEXABRIX (IOXAGLIC ACID) (IOXAGLIC ACID) [Suspect]
     Indication: CATHETERISATION CARDIAC

REACTIONS (1)
  - HYPERTHYROIDISM [None]
